FAERS Safety Report 13434297 (Version 1)
Quarter: 2017Q2

REPORT INFORMATION
  Report Type: Spontaneous
  Country: US (occurrence: US)
  Receive Date: 20170413
  Receipt Date: 20170413
  Transmission Date: 20170830
  Serious: No
  Sender: FDA-Public Use
  Company Number: US-FERRINGPH-2016FE03325

PATIENT
  Age: 71 Year
  Sex: Male
  Weight: 50.79 kg

DRUGS (5)
  1. ZYTIGA [Concomitant]
     Active Substance: ABIRATERONE ACETATE
     Indication: PRODUCT USED FOR UNKNOWN INDICATION
     Route: 065
  2. FIRMAGON [Suspect]
     Active Substance: DEGARELIX ACETATE
     Dosage: 160 MG, ONCE/SINGLE
     Route: 058
     Dates: start: 2016
  3. DEXAMETHASONE. [Concomitant]
     Active Substance: DEXAMETHASONE
     Indication: PRODUCT USED FOR UNKNOWN INDICATION
     Dosage: 0.75 MG, DAILY
     Route: 048
  4. FIRMAGON [Suspect]
     Active Substance: DEGARELIX ACETATE
     Indication: PROSTATE CANCER
     Dosage: 80 MG, UNK
     Route: 058
     Dates: start: 201603, end: 20160714
  5. METFORMIN [Concomitant]
     Active Substance: METFORMIN HYDROCHLORIDE
     Indication: PRODUCT USED FOR UNKNOWN INDICATION
     Dosage: 850 MG, 3 TIMES DAILY
     Route: 048

REACTIONS (2)
  - Drug prescribing error [Recovered/Resolved]
  - Wrong technique in product usage process [Recovered/Resolved]

NARRATIVE: CASE EVENT DATE: 201603
